FAERS Safety Report 5035377-X (Version None)
Quarter: 2006Q2

REPORT INFORMATION
  Report Type: 
  Country: None (occurrence: None)
  Receive Date: 20060524
  Receipt Date: 20050603
  Transmission Date: 20061013
  Serious: Yes (Hospitalization)
  Sender: FDA-Public Use
  Company Number: INDT-PR-0506S-0007

PATIENT
  Age: 74 Year
  Sex: Female

DRUGS (1)
  1. INDIUM- 111 DTPA INJ [Suspect]
     Indication: HYDROCEPHALUS
     Dosage: 18.5 MGQ, SINGLE DOSE, I.T.
     Dates: start: 20050531, end: 20050531

REACTIONS (1)
  - MENINGITIS BACTERIAL [None]
